FAERS Safety Report 8160516-1 (Version None)
Quarter: 2012Q1

REPORT INFORMATION
  Report Type: 
  Country: None (occurrence: None)
  Receive Date: 20120223
  Receipt Date: 20120215
  Transmission Date: 20120608
  Serious: Yes (Hospitalization)
  Sender: FDA-Public Use
  Company Number: US-CELGENEUS-163-21880-12021759

PATIENT
  Sex: Male

DRUGS (10)
  1. LOVENOX [Concomitant]
     Route: 065
  2. ASPIRIN [Concomitant]
     Route: 065
  3. VITAMIN B-12 [Concomitant]
     Route: 065
  4. NORVASC [Concomitant]
     Route: 065
  5. CILOSTAZOL [Concomitant]
     Route: 065
  6. RANITIDINE [Concomitant]
     Route: 065
  7. REVLIMID [Suspect]
     Indication: MULTIPLE MYELOMA
     Dosage: 15 MILLIGRAM
     Route: 048
     Dates: start: 20111123
  8. HCTZ-TRIAMT [Concomitant]
     Route: 065
  9. LISINOPRIL [Concomitant]
     Route: 065
  10. PRAVASTATIN [Concomitant]
     Route: 065

REACTIONS (1)
  - ANGIOPATHY [None]
